FAERS Safety Report 8488818-X (Version None)
Quarter: 2012Q2

REPORT INFORMATION
  Report Type: 
  Country: None (occurrence: None)
  Receive Date: 20120626
  Receipt Date: 20120612
  Transmission Date: 20120825
  Serious: Yes (Hospitalization)
  Sender: FDA-Public Use
  Company Number: TCI2009A04543

PATIENT
  Age: 72 Year
  Sex: Male

DRUGS (4)
  1. ALPHA GLUCOSIDASE INHIBITORS [Concomitant]
  2. ACTOS [Suspect]
     Indication: TYPE 2 DIABETES MELLITUS
     Dosage: 15 MG (15 MG, 1 D)
     Route: 048
     Dates: start: 20081027
  3. HMG COA REDUCTASE INHIBITORS [Concomitant]
  4. INSULINS AND ANALOGUES [Concomitant]

REACTIONS (3)
  - LUNG NEOPLASM MALIGNANT [None]
  - UPPER RESPIRATORY TRACT INFLAMMATION [None]
  - SPINAL OSTEOARTHRITIS [None]
